FAERS Safety Report 18146494 (Version 1)
Quarter: 2020Q3

REPORT INFORMATION
  Report Type: Spontaneous
  Country: CN (occurrence: CN)
  Receive Date: 20200813
  Receipt Date: 20200813
  Transmission Date: 20201103
  Serious: Yes (Hospitalization, Other)
  Sender: FDA-Public Use
  Company Number: CN-SA-2020SA207147

PATIENT

DRUGS (8)
  1. SODIUM CHLORIDE. [Concomitant]
     Active Substance: SODIUM CHLORIDE
     Dosage: 100 ML, QD
     Route: 041
     Dates: start: 20200710, end: 20200710
  2. SODIUM CHLORIDE. [Concomitant]
     Active Substance: SODIUM CHLORIDE
     Indication: VEHICLE SOLUTION USE
     Dosage: 250 ML, QD
     Route: 041
     Dates: start: 20200710, end: 20200710
  3. SODIUM CHLORIDE. [Concomitant]
     Active Substance: SODIUM CHLORIDE
     Dosage: 500 ML, QD
     Route: 041
     Dates: start: 20200710, end: 20200712
  4. CISPLATIN. [Suspect]
     Active Substance: CISPLATIN
     Indication: CHEMOTHERAPY
     Dosage: 40 MG, QD
     Route: 041
     Dates: start: 20200710, end: 20200712
  5. BEVACIZUMAB. [Suspect]
     Active Substance: BEVACIZUMAB
     Indication: CHEMOTHERAPY
     Dosage: 500 MG, QD
     Route: 041
     Dates: start: 20200710, end: 20200710
  6. TISLELIZUMAB [Suspect]
     Active Substance: TISLELIZUMAB
     Indication: IMMUNOCHEMOTHERAPY
     Dosage: 200 MG, QD
     Route: 041
     Dates: start: 20200710, end: 20200710
  7. TAXOTERE [Suspect]
     Active Substance: DOCETAXEL
     Indication: CHEMOTHERAPY
     Dosage: 130 MG, QD
     Route: 041
     Dates: start: 20200710, end: 20200710
  8. SODIUM CHLORIDE. [Concomitant]
     Active Substance: SODIUM CHLORIDE
     Dosage: 100 ML, QD
     Route: 041
     Dates: start: 20200710, end: 20200710

REACTIONS (3)
  - Insomnia [Recovering/Resolving]
  - Oropharyngeal pain [Recovering/Resolving]
  - Cytopenia [Recovering/Resolving]

NARRATIVE: CASE EVENT DATE: 20200715
